FAERS Safety Report 13782605 (Version 1)
Quarter: 2017Q3

REPORT INFORMATION
  Report Type: Spontaneous
  Country: GB (occurrence: GB)
  Receive Date: 20170724
  Receipt Date: 20170724
  Transmission Date: 20171127
  Serious: Yes (Hospitalization, Other)
  Sender: FDA-Public Use
  Company Number: GB-PFIZER INC-277918

PATIENT
  Age: 4 Year
  Sex: Female
  Weight: 14.2 kg

DRUGS (1)
  1. METHOTREXATE SODIUM. [Suspect]
     Active Substance: METHOTREXATE SODIUM
     Indication: POLYARTHRITIS
     Dosage: 5 MG, FREQ: 1 WEEK
     Route: 048
     Dates: start: 20050207

REACTIONS (2)
  - Lower respiratory tract infection [Unknown]
  - Otitis media [Unknown]

NARRATIVE: CASE EVENT DATE: 20070618
